FAERS Safety Report 5157925-1 (Version None)
Quarter: 2006Q4

REPORT INFORMATION
  Report Type: 
  Country: None (occurrence: None)
  Receive Date: 20061116
  Receipt Date: 20061103
  Transmission Date: 20070319
  Serious: Yes (Other)
  Sender: FDA-Public Use
  Company Number: 2006136209

PATIENT
  Age: 50 Year
  Sex: Female
  Weight: 68.0396 kg

DRUGS (2)
  1. LYRICA [Suspect]
     Indication: NEUROPATHY PERIPHERAL
     Dosage: 150 MG (50 MG, TID: EVERY DAY), ORAL
     Route: 048
     Dates: start: 20061101, end: 20061101
  2. SYNTHROID [Concomitant]

REACTIONS (17)
  - BLOOD PRESSURE INCREASED [None]
  - CARDIAC FLUTTER [None]
  - CLUSTER HEADACHE [None]
  - DRUG HYPERSENSITIVITY [None]
  - DYSGRAPHIA [None]
  - FEELING ABNORMAL [None]
  - GENERALISED ERYTHEMA [None]
  - HALO VISION [None]
  - HYPERAESTHESIA [None]
  - NEUROPATHY PERIPHERAL [None]
  - PAIN [None]
  - PAIN IN EXTREMITY [None]
  - PRURITUS GENERALISED [None]
  - RASH MACULO-PAPULAR [None]
  - TREMOR [None]
  - UNEVALUABLE EVENT [None]
  - VISUAL DISTURBANCE [None]
